FAERS Safety Report 9270243 (Version 2)
Quarter: 2013Q2

REPORT INFORMATION
  Report Type: Spontaneous
  Country: DE (occurrence: DE)
  Receive Date: 20130503
  Receipt Date: 20130514
  Transmission Date: 20140414
  Serious: Yes (Hospitalization)
  Sender: FDA-Public Use
  Company Number: DE-GLAXOSMITHKLINE-D0079613A

PATIENT
  Age: 73 Year
  Sex: Female
  Weight: 61 kg

DRUGS (3)
  1. AVAMYS [Suspect]
     Indication: SEASONAL ALLERGY
     Dosage: 4PUFF SINGLE DOSE
     Route: 045
     Dates: start: 20130425, end: 20130425
  2. DIOVAN 80 [Concomitant]
     Route: 065
  3. HOMEOPATHIC ALLERGY MEDICATION [Concomitant]
     Route: 048

REACTIONS (5)
  - Dyspnoea [Not Recovered/Not Resolved]
  - Hypopnoea [Not Recovered/Not Resolved]
  - Middle insomnia [Unknown]
  - Oedema [Unknown]
  - Product quality issue [Unknown]
